FAERS Safety Report 24405394 (Version 1)
Quarter: 2024Q4

REPORT INFORMATION
  Report Type: Spontaneous
  Country: US (occurrence: None)
  Receive Date: 20241004
  Receipt Date: 20241004
  Transmission Date: 20250115
  Serious: Yes (Other)
  Sender: Public
  Company Number: None

PATIENT
  Age: 54 Year
  Sex: Female
  Weight: 93.6 kg

DRUGS (6)
  1. OZEMPIC [Suspect]
     Active Substance: SEMAGLUTIDE
     Indication: Type 2 diabetes mellitus
  2. albuterol aerosol pump [Concomitant]
  3. OZEMPIC [Concomitant]
     Active Substance: SEMAGLUTIDE
  4. ATORVASTATIN [Concomitant]
     Active Substance: ATORVASTATIN
  5. GLIMEPIRIDE [Concomitant]
     Active Substance: GLIMEPIRIDE
  6. ALEVE [Concomitant]
     Active Substance: NAPROXEN SODIUM

REACTIONS (2)
  - Abdominal pain upper [None]
  - Back pain [None]

NARRATIVE: CASE EVENT DATE: 20241001
